FAERS Safety Report 8790838 (Version 1)
Quarter: 2012Q4

REPORT INFORMATION
  Report Type: Spontaneous
  Country: DE (occurrence: None)
  Receive Date: 20120907
  Receipt Date: 20120907
  Transmission Date: 20130627
  Serious: Yes (Other)
  Sender: FDA-Public Use
  Company Number: GER/GER/12/0025573

PATIENT
  Age: 59 Year
  Sex: Female
  Weight: 115 kg

DRUGS (1)
  1. ENABETA [Suspect]
     Indication: DRUG USE FOR UNKNOWN INDICATION
     Dosage: 40 dosage forms, 1 in 1 total, oral
     Route: 048

REACTIONS (3)
  - Systolic hypertension [None]
  - Micturition urgency [None]
  - Intentional overdose [None]
